FAERS Safety Report 7067532-1 (Version None)
Quarter: 2010Q4

REPORT INFORMATION
  Report Type: 
  Country: None (occurrence: None)
  Receive Date: 20101019
  Receipt Date: 20101014
  Transmission Date: 20110411
  Serious: Yes (Other)
  Sender: FDA-Public Use
  Company Number: A0886691A

PATIENT
  Age: 44 Year
  Sex: Female

DRUGS (1)
  1. ASPIRIN + CAFFEINE + SALICYLAMIDE (FORMULATION UNKNOWN (ASPIRIRIN+CAFF [Suspect]
     Dosage: ORAL
     Route: 048

REACTIONS (6)
  - DEPENDENCE [None]
  - DRUG ADMINISTRATION ERROR [None]
  - GASTRIC MUCOSAL LESION [None]
  - GASTRIC PERFORATION [None]
  - GASTRIC ULCER [None]
  - HUNGER [None]
